FAERS Safety Report 16945364 (Version 1)
Quarter: 2019Q4

REPORT INFORMATION
  Report Type: Spontaneous
  Country: GB (occurrence: GB)
  Receive Date: 20191022
  Receipt Date: 20191022
  Transmission Date: 20200122
  Serious: Yes (Other)
  Sender: FDA-Public Use
  Company Number: GB-MYLANLABS-2019M1098676

PATIENT
  Sex: Female

DRUGS (11)
  1. RIVAROXABAN [Concomitant]
     Active Substance: RIVAROXABAN
     Dosage: UNK
  2. BENDROFLUMETHIAZIDE [Concomitant]
     Active Substance: BENDROFLUMETHIAZIDE
     Dosage: UNK
  3. TERIPARATIDE [Concomitant]
     Active Substance: TERIPARATIDE
     Dosage: UNK
  4. BUPRENORPHINE. [Concomitant]
     Active Substance: BUPRENORPHINE
     Dosage: UNK
  5. FERROUS FUMARATE [Concomitant]
     Active Substance: FERROUS FUMARATE
     Dosage: UNK
  6. LOSARTAN. [Concomitant]
     Active Substance: LOSARTAN
     Dosage: UNK
  7. CIPROFLOXACIN. [Suspect]
     Active Substance: CIPROFLOXACIN
     Indication: CELLULITIS
     Dosage: 1000 MILLIGRAM, QD
     Route: 048
     Dates: start: 20190905
  8. CALCICHEW [Concomitant]
     Active Substance: CALCIUM CARBONATE
     Dosage: UNK
  9. PARACETAMOL [Concomitant]
     Active Substance: ACETAMINOPHEN
     Dosage: UNK
  10. FLUCLOXACILLIN [Concomitant]
     Active Substance: FLUCLOXACILLIN
     Dosage: UNK
  11. AMLODIPINE [Concomitant]
     Active Substance: AMLODIPINE BESYLATE
     Dosage: UNK

REACTIONS (2)
  - Unresponsive to stimuli [Unknown]
  - Seizure [Unknown]

NARRATIVE: CASE EVENT DATE: 20190907
